FAERS Safety Report 21812578 (Version 1)
Quarter: 2023Q1

REPORT INFORMATION
  Report Type: Spontaneous
  Country: FR (occurrence: FR)
  Receive Date: 20230103
  Receipt Date: 20230103
  Transmission Date: 20230418
  Serious: Yes (Hospitalization)
  Sender: FDA-Public Use
  Company Number: None

PATIENT
  Age: 45 Year
  Sex: Male
  Weight: 100 kg

DRUGS (2)
  1. METFORMIN [Suspect]
     Active Substance: METFORMIN HYDROCHLORIDE
     Indication: Diabetes mellitus
     Dosage: STOP DATE: OCT-2022
     Route: 048
     Dates: start: 20221021
  2. DAPAGLIFLOZIN [Suspect]
     Active Substance: DAPAGLIFLOZIN
     Indication: Diabetes mellitus
     Dosage: STOP DATE: OCT-2022
     Route: 048
     Dates: start: 20221021

REACTIONS (6)
  - Acute kidney injury [Recovered/Resolved]
  - Polyuria [Recovered/Resolved]
  - Hypotension [Recovered/Resolved]
  - Lactic acidosis [Recovered/Resolved]
  - Diarrhoea [Recovered/Resolved]
  - Vomiting [Recovered/Resolved]
